FAERS Safety Report 4648832-9 (Version None)
Quarter: 2005Q2

REPORT INFORMATION
  Report Type: 
  Country: None (occurrence: None)
  Receive Date: 20050429
  Receipt Date: 20050418
  Transmission Date: 20051028
  Serious: Yes (Death)
  Sender: FDA-Public Use
  Company Number: CA-JNJFOC-20050202585

PATIENT
  Sex: Male

DRUGS (1)
  1. DURAGESIC-100 [Suspect]
     Indication: INTENTIONAL MISUSE
     Dosage: FOUND WEARING 2 PATCHES OF FENTANYL-TTS (RESERVOIR PATCH), DOSAGE UNKNOWN
     Route: 062

REACTIONS (2)
  - ACCIDENTAL OVERDOSE [None]
  - DRUG ABUSER [None]
